FAERS Safety Report 9758533 (Version 1)
Quarter: 2013Q4

REPORT INFORMATION
  Report Type: Spontaneous
  Country: US (occurrence: None)
  Receive Date: 20131216
  Receipt Date: 20131216
  Transmission Date: 20140711
  Serious: Yes (Death)
  Sender: FDA-Public Use
  Company Number: CABO-13002637

PATIENT
  Age: 67 Year
  Sex: Male

DRUGS (1)
  1. COMETRIQ (CABOZANTINIB) CAPSULE [Suspect]
     Indication: BRAIN NEOPLASM MALIGNANT
     Dosage: 140 MG, QD, ORAL

REACTIONS (3)
  - Malignant neoplasm progression [None]
  - White blood cell count decreased [None]
  - Palmar-plantar erythrodysaesthesia syndrome [None]
